FAERS Safety Report 24220090 (Version 4)
Quarter: 2025Q3

REPORT INFORMATION
  Report Type: Spontaneous
  Country: US (occurrence: US)
  Receive Date: 20240817
  Receipt Date: 20250811
  Transmission Date: 20251021
  Serious: Yes (Hospitalization)
  Sender: SANOFI AVENTIS
  Company Number: US-SA-SAC20240814001223

PATIENT
  Age: 67 Year
  Sex: Male
  Weight: 68.94 kg

DRUGS (46)
  1. REZUROCK [Suspect]
     Active Substance: BELUMOSUDIL
     Indication: Chronic graft versus host disease
     Dosage: 200 MG, BID
     Route: 048
     Dates: start: 20250719
  2. REZUROCK [Suspect]
     Active Substance: BELUMOSUDIL
     Indication: Chronic lymphocytic leukaemia (in remission)
  3. JAKAFI [Suspect]
     Active Substance: RUXOLITINIB
     Dosage: 10 MG, BID
  4. PROTONIX [Concomitant]
     Active Substance: PANTOPRAZOLE SODIUM
  5. VENCLEXTA [Concomitant]
     Active Substance: VENETOCLAX
     Dosage: 100 MG, QD
  6. ATORVASTATIN [Concomitant]
     Active Substance: ATORVASTATIN
  7. ATORVASTATIN [Concomitant]
     Active Substance: ATORVASTATIN
  8. BECLOMETHASONE [Concomitant]
     Active Substance: BECLOMETHASONE
  9. BUDESONIDE [Concomitant]
     Active Substance: BUDESONIDE
  10. BUDESONIDE [Concomitant]
     Active Substance: BUDESONIDE
  11. CRESEMBA [Concomitant]
     Active Substance: ISAVUCONAZONIUM SULFATE
  12. HYDRALAZINE [Concomitant]
     Active Substance: HYDRALAZINE HYDROCHLORIDE
  13. HYDROXYZINE [Concomitant]
     Active Substance: HYDROXYZINE HYDROCHLORIDE
  14. ADULT MULTIVITAMIN [Concomitant]
  15. ZYPREXA [Concomitant]
     Active Substance: OLANZAPINE
  16. VALTREX [Concomitant]
     Active Substance: VALACYCLOVIR HYDROCHLORIDE
  17. URSODIOL [Concomitant]
     Active Substance: URSODIOL
  18. TAMSULOSIN [Concomitant]
     Active Substance: TAMSULOSIN
  19. TACROLIMUS [Concomitant]
     Active Substance: TACROLIMUS
  20. SIROLIMUS [Concomitant]
     Active Substance: SIROLIMUS
  21. REMERON [Concomitant]
     Active Substance: MIRTAZAPINE
  22. PROCHLORPERAZINE MALEATE [Concomitant]
     Active Substance: PROCHLORPERAZINE MALEATE
  23. PREDNISONE [Concomitant]
     Active Substance: PREDNISONE
  24. ZOFRAN [Concomitant]
     Active Substance: ONDANSETRON HYDROCHLORIDE
  25. PYRIDIUM [Concomitant]
     Active Substance: PHENAZOPYRIDINE
  26. PREVYMIS [Concomitant]
     Active Substance: LETERMOVIR
  27. CLARITHROMYCIN [Concomitant]
     Active Substance: CLARITHROMYCIN
  28. LIDOPRO [CAPSAICIN;LIDOCAINE;MENTHOL;METHYL SALICYLATE] [Concomitant]
  29. FISH OIL [Concomitant]
     Active Substance: FISH OIL
  30. METOPROLOL TARTRATE [Concomitant]
     Active Substance: METOPROLOL TARTRATE
  31. DESONIDE [Concomitant]
     Active Substance: DESONIDE
  32. SODIUM CHLORIDE [Concomitant]
     Active Substance: SODIUM CHLORIDE
  33. Chelated magnesium [Concomitant]
  34. WELLBUTRIN SR [Concomitant]
     Active Substance: BUPROPION HYDROCHLORIDE
  35. VITAMIN D3 [Concomitant]
     Active Substance: CHOLECALCIFEROL
  36. FLUOCINONIDE [Concomitant]
     Active Substance: FLUOCINONIDE
  37. VIDAZA [Concomitant]
     Active Substance: AZACITIDINE
  38. MELATONIN [Concomitant]
     Active Substance: MELATONIN
  39. Lidocaine;Menthol [Concomitant]
  40. LOSARTAN [Concomitant]
     Active Substance: LOSARTAN
  41. REFRESH TEARS [Concomitant]
     Active Substance: CARBOXYMETHYLCELLULOSE SODIUM
  42. CALCIUM [Concomitant]
     Active Substance: CALCIUM
  43. CALCIUM [Concomitant]
     Active Substance: CALCIUM
  44. BACTRIM DS [Concomitant]
     Active Substance: SULFAMETHOXAZOLE\TRIMETHOPRIM
  45. BACTRIM DS [Concomitant]
     Active Substance: SULFAMETHOXAZOLE\TRIMETHOPRIM
  46. CALCIUM MAGNESIUM ZINC [CALCIUM;MAGNESIUM;ZINC] [Concomitant]

REACTIONS (9)
  - Hospitalisation [Unknown]
  - Iron overload [Unknown]
  - Eating disorder [Unknown]
  - Urticaria [Not Recovered/Not Resolved]
  - Rash [Not Recovered/Not Resolved]
  - Malaise [Recovering/Resolving]
  - Anaemia [Recovering/Resolving]
  - Fatigue [Unknown]
  - Product use in unapproved indication [Unknown]

NARRATIVE: CASE EVENT DATE: 20250719
